FAERS Safety Report 8775293 (Version 1)
Quarter: 2012Q4

REPORT INFORMATION
  Report Type: 
  Country: PE (occurrence: PE)
  Receive Date: 20120909
  Receipt Date: 20120909
  Transmission Date: 20130627
  Serious: Yes (Other)
  Sender: FDA-Public Use
  Company Number: PE-BRISTOL-MYERS SQUIBB COMPANY-16912933

PATIENT
  Age: 59 Year
  Sex: Male

DRUGS (1)
  1. DASATINIB [Suspect]

REACTIONS (1)
  - Colon cancer [Unknown]
